FAERS Safety Report 20767294 (Version 1)
Quarter: 2022Q2

REPORT INFORMATION
  Report Type: Spontaneous
  Country: FR (occurrence: FR)
  Receive Date: 20220429
  Receipt Date: 20220429
  Transmission Date: 20220721
  Serious: Yes (Death)
  Sender: FDA-Public Use
  Company Number: None

PATIENT
  Age: 19 Year
  Sex: Female

DRUGS (4)
  1. PAROXETINE [Suspect]
     Active Substance: PAROXETINE
     Dosage: UNKNOWN , PAROXETINE (CHLORHYDRATE DE) ANHYDRE
     Route: 065
     Dates: end: 202112
  2. TRAMADOL [Suspect]
     Active Substance: TRAMADOL
     Dosage: UNKNOWN , TRAMADOL (CHLORHYDRATE DE)
     Route: 065
     Dates: end: 202112
  3. LORMETAZEPAM [Suspect]
     Active Substance: LORMETAZEPAM
     Dosage: UNKNOWN
     Route: 065
     Dates: end: 202112
  4. CYAMEMAZINE [Suspect]
     Active Substance: CYAMEMAZINE
     Dosage: UNKNOWN
     Route: 065
     Dates: end: 202112

REACTIONS (3)
  - Respiratory depression [Fatal]
  - Poisoning deliberate [Fatal]
  - Drowning [Fatal]
